FAERS Safety Report 6638845-X (Version None)
Quarter: 2010Q1

REPORT INFORMATION
  Report Type: 
  Country: None (occurrence: None)
  Receive Date: 20100317
  Receipt Date: 20100311
  Transmission Date: 20100710
  Serious: Yes (Death, Hospitalization)
  Sender: FDA-Public Use
  Company Number: DE-ELI_LILLY_AND_COMPANY-DE201003003329

PATIENT
  Sex: Male
  Weight: 87 kg

DRUGS (2)
  1. GEMCITABINE HCL [Suspect]
     Indication: BILE DUCT CANCER
     Dosage: 1000 MG/M2, WEEKLY (1/W)
     Route: 042
     Dates: start: 20091201, end: 20100118
  2. PLACEBO [Suspect]
     Indication: BILE DUCT CANCER
     Dosage: 4 D/F, DAILY (1/D)
     Route: 048
     Dates: start: 20091201, end: 20100202

REACTIONS (1)
  - PULMONARY TOXICITY [None]
